FAERS Safety Report 17043618 (Version 1)
Quarter: 2019Q4

REPORT INFORMATION
  Report Type: Spontaneous
  Country: US (occurrence: US)
  Receive Date: 20191017
  Receipt Date: 20191017
  Transmission Date: 20200122
  Serious: Yes (Death, Hospitalization, Disabling)
  Sender: FDA-Public Use
  Company Number: None

PATIENT
  Age: 53 Year
  Sex: Male
  Weight: 83.91 kg

DRUGS (2)
  1. FAZACLO [Suspect]
     Active Substance: CLOZAPINE
  2. CLOZARIL [Suspect]
     Active Substance: CLOZAPINE
     Indication: SCHIZOAFFECTIVE DISORDER
     Dates: start: 200611

REACTIONS (6)
  - Cellulitis [None]
  - Cardio-respiratory arrest [None]
  - Anaemia [None]
  - Hypertension [None]
  - Lung cyst [None]
  - Thrombosis [None]
